FAERS Safety Report 10026983 (Version 1)
Quarter: 2014Q1

REPORT INFORMATION
  Report Type: Spontaneous
  Country: US (occurrence: US)
  Receive Date: 20140321
  Receipt Date: 20140321
  Transmission Date: 20141002
  Serious: No
  Sender: FDA-Public Use
  Company Number: US-MYLANLABS-2013S1028706

PATIENT
  Sex: Male
  Weight: 106.6 kg

DRUGS (1)
  1. ALBUTEROL SULFATE INHALATION SOLUTION [Suspect]
     Indication: ASTHMA
     Dosage: PRN
     Route: 055
     Dates: start: 2010, end: 2010

REACTIONS (3)
  - Asthma [Recovered/Resolved]
  - Dyspnoea [Recovered/Resolved]
  - Reaction to drug excipients [Recovered/Resolved]
